FAERS Safety Report 15933238 (Version 1)
Quarter: 2019Q1

REPORT INFORMATION
  Report Type: Spontaneous
  Country: DZ (occurrence: DZ)
  Receive Date: 20190207
  Receipt Date: 20190207
  Transmission Date: 20190417
  Serious: Yes (Other)
  Sender: FDA-Public Use
  Company Number: DZ-FERRINGPH-2019FE00514

PATIENT

DRUGS (1)
  1. MINIRIN [Suspect]
     Active Substance: DESMOPRESSIN ACETATE
     Indication: ENURESIS
     Dosage: 3 DF, DAILY
     Route: 048

REACTIONS (3)
  - Dizziness [Unknown]
  - Fatigue [Unknown]
  - Pollakiuria [Unknown]
